FAERS Safety Report 5525496-3 (Version None)
Quarter: 2007Q4

REPORT INFORMATION
  Report Type: 
  Country: None (occurrence: None)
  Receive Date: 20071126
  Receipt Date: 20071116
  Transmission Date: 20080405
  Serious: Yes (Other)
  Sender: FDA-Public Use
  Company Number: A0442654A

PATIENT
  Age: 30 Year
  Sex: Female

DRUGS (3)
  1. WELLBUTRIN SR [Suspect]
     Indication: DEPRESSION
     Dosage: 150MG TWICE PER DAY
     Route: 048
     Dates: start: 20010101, end: 20020501
  2. WELLBUTRIN XL [Suspect]
     Indication: DEPRESSION
     Route: 048
     Dates: start: 20020501
  3. ANTIBIOTICS [Concomitant]

REACTIONS (7)
  - BUNDLE BRANCH BLOCK [None]
  - DRUG INEFFECTIVE [None]
  - GASTRIC PH DECREASED [None]
  - GASTRIC ULCER [None]
  - GASTROOESOPHAGEAL CANCER [None]
  - PHARMACEUTICAL PRODUCT COMPLAINT [None]
  - WEIGHT DECREASED [None]
